FAERS Safety Report 10818329 (Version 11)
Quarter: 2018Q4

REPORT INFORMATION
  Report Type: Spontaneous
  Country: US (occurrence: US)
  Receive Date: 20150218
  Receipt Date: 20181121
  Transmission Date: 20190204
  Serious: Yes (Hospitalization, Other)
  Sender: FDA-Public Use
  Company Number: US-PFIZER INC-2015054299

PATIENT
  Age: 85 Year
  Sex: Female
  Weight: 63 kg

DRUGS (6)
  1. LYRICA [Suspect]
     Active Substance: PREGABALIN
     Dosage: 150 MG, 2X/DAY
     Route: 048
     Dates: start: 200801
  2. NORCO [Concomitant]
     Active Substance: ACETAMINOPHEN\HYDROCODONE BITARTRATE
     Dosage: 5-325
  3. DILTIAZEM. [Concomitant]
     Active Substance: DILTIAZEM
     Indication: HYPERTENSION
     Dosage: 240 MG, 1X/DAY
  4. LYRICA [Suspect]
     Active Substance: PREGABALIN
     Indication: NEUROPATHY PERIPHERAL
     Dosage: 150 MG, 2X/DAY
     Route: 048
     Dates: start: 2008
  5. VICODIN [Concomitant]
     Active Substance: ACETAMINOPHEN\HYDROCODONE BITARTRATE
     Dosage: UNK
     Dates: start: 200801
  6. LYRICA [Suspect]
     Active Substance: PREGABALIN
     Indication: SPINAL COLUMN STENOSIS
     Dosage: 300 MG, 2X/DAY (TWO CAPSULES IN THE MORNING AND TWO AT NIGHT)
     Route: 048

REACTIONS (13)
  - Cellulitis [Unknown]
  - Patella fracture [Recovered/Resolved]
  - Urinary tract infection [Unknown]
  - Confusional state [Unknown]
  - Nasopharyngitis [Unknown]
  - Amnesia [Unknown]
  - Arthritis [Unknown]
  - Ammonia abnormal [Unknown]
  - Nasal congestion [Unknown]
  - Joint swelling [Unknown]
  - Malaise [Unknown]
  - Ligament rupture [Recovered/Resolved]
  - Feeling abnormal [Unknown]
